FAERS Safety Report 5202124-8 (Version None)
Quarter: 2007Q1

REPORT INFORMATION
  Report Type: 
  Country: None (occurrence: None)
  Receive Date: 20070103
  Receipt Date: 20061226
  Transmission Date: 20070707
  Serious: Yes (Life-Threatening)
  Sender: FDA-Public Use
  Company Number: 2006-152306-NL

PATIENT
  Age: 26 Year
  Sex: Female

DRUGS (1)
  1. VECURONIUM BROMIDE [Suspect]

REACTIONS (2)
  - ANAPHYLACTIC REACTION [None]
  - RESUSCITATION [None]
